FAERS Safety Report 24459320 (Version 2)
Quarter: 2024Q4

REPORT INFORMATION
  Report Type: Spontaneous
  Country: NL (occurrence: NL)
  Receive Date: 20241018
  Receipt Date: 20241018
  Transmission Date: 20250114
  Serious: Yes (Hospitalization)
  Sender: STRIDES
  Company Number: NL-STRIDES ARCOLAB LIMITED-2024SP013397

PATIENT
  Age: 17 Year
  Sex: Male

DRUGS (11)
  1. MORPHINE SULFATE [Suspect]
     Active Substance: MORPHINE SULFATE
     Indication: Anaesthesia procedure
     Dosage: 4 MILLIGRAM
     Route: 065
  2. SUFENTANIL [Suspect]
     Active Substance: SUFENTANIL
     Indication: Anaesthesia procedure
     Dosage: 35 MICROGRAM
     Route: 065
  3. PROPOFOL [Suspect]
     Active Substance: PROPOFOL
     Indication: Anaesthesia procedure
     Dosage: 290 MILLIGRAM
     Route: 065
  4. PROPOFOL [Suspect]
     Active Substance: PROPOFOL
     Dosage: 928 MILLIGRAM
     Route: 065
  5. EPHEDRINE [Suspect]
     Active Substance: EPHEDRINE
     Indication: Anaesthesia procedure
     Dosage: 7.5 MILLIGRAM
     Route: 065
  6. ACETAMINOPHEN [Suspect]
     Active Substance: ACETAMINOPHEN
     Indication: Anaesthesia procedure
     Dosage: 1000 MILLIGRAM
     Route: 065
  7. DEXAMETHASONE [Suspect]
     Active Substance: DEXAMETHASONE
     Indication: Anaesthesia procedure
     Dosage: 4 MILLIGRAM
     Route: 065
  8. CEFAZOLIN SODIUM [Concomitant]
     Active Substance: CEFAZOLIN SODIUM
     Indication: Product used for unknown indication
     Dosage: 1000 MILLIGRAM
     Route: 065
  9. ONDANSETRON [Concomitant]
     Active Substance: ONDANSETRON
     Indication: Product used for unknown indication
     Dosage: 4 MILLIGRAM
     Route: 065
  10. TRANEXAMIC ACID [Concomitant]
     Active Substance: TRANEXAMIC ACID
     Indication: Product used for unknown indication
     Dosage: 375 MILLIGRAM
     Route: 065
  11. LACTATED RINGERS SOLUTION [Concomitant]
     Active Substance: CALCIUM CHLORIDE\POTASSIUM CHLORIDE\SODIUM CHLORIDE\SODIUM LACTATE
     Indication: Product used for unknown indication
     Dosage: 1000 MILLILITER
     Route: 065

REACTIONS (3)
  - Language disorder [Recovered/Resolved]
  - Memory impairment [Recovered/Resolved]
  - Off label use [Unknown]
